FAERS Safety Report 4922795-0 (Version None)
Quarter: 2006Q1

REPORT INFORMATION
  Report Type: 
  Country: None (occurrence: None)
  Receive Date: 20060224
  Receipt Date: 20030130
  Transmission Date: 20060701
  Serious: Yes (Hospitalization, Disabling)
  Sender: FDA-Public Use
  Company Number: US-MERCK-0301USA03169

PATIENT
  Age: 51 Year
  Sex: Male
  Weight: 82 kg

DRUGS (6)
  1. VIOXX [Suspect]
     Indication: OSTEOARTHRITIS
     Route: 048
     Dates: start: 20000901, end: 20020212
  2. AMBIEN [Concomitant]
     Route: 065
  3. RANITIDINE [Concomitant]
     Route: 065
  4. ASPIRIN [Concomitant]
     Route: 065
     Dates: start: 19900101, end: 20020214
  5. TYLENOL (CAPLET) [Concomitant]
     Route: 065
     Dates: start: 19900101, end: 20050901
  6. CELEBREX [Concomitant]
     Route: 065
     Dates: start: 20011025

REACTIONS (5)
  - DEEP VEIN THROMBOSIS [None]
  - INJURY [None]
  - INSOMNIA [None]
  - PULMONARY EMBOLISM [None]
  - STOMACH DISCOMFORT [None]
